FAERS Safety Report 24972187 (Version 2)
Quarter: 2025Q3

REPORT INFORMATION
  Report Type: Spontaneous
  Country: CA (occurrence: None)
  Receive Date: 20250214
  Receipt Date: 20250816
  Transmission Date: 20251020
  Serious: No
  Sender: ALEXION PHARMACEUTICALS
  Company Number: CA-AstraZeneca-2011SE25747

PATIENT
  Age: 49 Year
  Sex: Male

DRUGS (1)
  1. NEXIUM [Suspect]
     Active Substance: ESOMEPRAZOLE MAGNESIUM
     Indication: Duodenal ulcer
     Dosage: 40 MILLIGRAM, QD

REACTIONS (1)
  - Tinnitus [Not Recovered/Not Resolved]
